FAERS Safety Report 7647995-0 (Version None)
Quarter: 2011Q3

REPORT INFORMATION
  Report Type: 
  Country: None (occurrence: None)
  Receive Date: 20110726
  Receipt Date: 20110715
  Transmission Date: 20111222
  Serious: Yes (Other)
  Sender: FDA-Public Use
  Company Number: 1000022303

PATIENT
  Age: 37 Year
  Sex: Male

DRUGS (5)
  1. ESCITALOPRAM OXALATE [Suspect]
     Dosage: 10 MG (10 MG, 1 IN 1 D),ORAL; 10 MG(10 MG, 1 IN 1 D), ORA
     Route: 048
     Dates: start: 20110201, end: 20110209
  2. ESCITALOPRAM OXALATE [Suspect]
     Dosage: 10 MG (10 MG, 1 IN 1 D),ORAL; 10 MG(10 MG, 1 IN 1 D), ORA
     Route: 048
     Dates: start: 20110121, end: 20110128
  3. TRIMIPRAMINE MALEATE [Suspect]
     Dosage: 100 MG (100 MG, 1 IN 1 D), ORAL; 75 MG (75 MG, 1 IN 1 D), ORAL
     Route: 047
     Dates: start: 20110121, end: 20110130
  4. TRIMIPRAMINE MALEATE [Suspect]
     Dosage: 100 MG (100 MG, 1 IN 1 D), ORAL; 75 MG (75 MG, 1 IN 1 D), ORAL
     Route: 047
     Dates: start: 20110131
  5. PANTOZOL (PANTOPRAZOLE SODIUM) (PANTOPRAZOLE SODIUM) [Concomitant]

REACTIONS (3)
  - AGITATION [None]
  - DRUG INTERACTION [None]
  - HYPERHIDROSIS [None]
